FAERS Safety Report 24406683 (Version 2)
Quarter: 2024Q4

REPORT INFORMATION
  Report Type: Report from Study
  Country: JP (occurrence: JP)
  Receive Date: 20241007
  Receipt Date: 20241119
  Transmission Date: 20250115
  Serious: Yes (Hospitalization, Other)
  Sender: AKEBIA THERAPEUTICS
  Company Number: JP-MTPC-MTPC2023-0004618

PATIENT
  Age: 53 Year
  Sex: Male
  Weight: 64.2 kg

DRUGS (23)
  1. VADADUSTAT [Suspect]
     Active Substance: VADADUSTAT
     Indication: Nephrogenic anaemia
     Dosage: 300 MILLIGRAM, QD
     Route: 048
     Dates: start: 20220808, end: 20221204
  2. VADADUSTAT [Suspect]
     Active Substance: VADADUSTAT
     Dosage: 450 MILLIGRAM, QD
     Route: 048
     Dates: start: 20221205, end: 20230110
  3. VADADUSTAT [Suspect]
     Active Substance: VADADUSTAT
     Dosage: 600 MILLIGRAM, QD
     Route: 048
     Dates: start: 20230111, end: 20240619
  4. JARDIANCE [Suspect]
     Active Substance: EMPAGLIFLOZIN
     Indication: Illness
     Dosage: 10 MILLIGRAM, QD
     Route: 048
     Dates: end: 20230719
  5. UPACICALCET SODIUM HYDRATE [Suspect]
     Active Substance: UPACICALCET SODIUM HYDRATE
     Indication: Product used for unknown indication
     Dosage: UNK
     Route: 065
  6. CALCIUM CARBONATE [Concomitant]
     Active Substance: CALCIUM CARBONATE
     Indication: Product used for unknown indication
     Dosage: 1500 MILLIGRAM, QD
     Route: 048
     Dates: start: 20220912
  7. ROCALTROL [Concomitant]
     Active Substance: CALCITRIOL
     Indication: Illness
     Dosage: 0.25 MICROGRAM, QD
     Route: 048
     Dates: start: 20220912
  8. IRON SUCROSE [Concomitant]
     Active Substance: IRON SUCROSE
     Indication: Product used for unknown indication
     Dosage: 40 MILLIGRAM, QD
     Route: 051
     Dates: start: 20230315, end: 20230517
  9. IRON SUCROSE [Concomitant]
     Active Substance: IRON SUCROSE
     Dosage: 40 MILLIGRAM, QD
     Route: 051
     Dates: start: 20231215
  10. LINAGLIPTIN [Concomitant]
     Active Substance: LINAGLIPTIN
     Indication: Illness
     Dosage: 5 MILLIGRAM, QD
     Route: 048
     Dates: start: 20230719, end: 20240522
  11. LEVOCARNITINE FF [Concomitant]
     Indication: Product used for unknown indication
     Dosage: 1000 MILLIGRAM, QD
     Route: 051
     Dates: start: 20230809
  12. DARBEPOETIN ALFA [Concomitant]
     Active Substance: DARBEPOETIN ALFA
     Indication: Nephrogenic anaemia
     Dosage: 20 MICROGRAM, 1/WEEK
     Route: 042
     Dates: start: 20230906, end: 20240508
  13. DARBEPOETIN ALFA [Concomitant]
     Active Substance: DARBEPOETIN ALFA
     Dosage: 15 MICROGRAM, 1/WEEK
     Route: 042
     Dates: start: 20240510, end: 20240619
  14. METHOXY POLYETHYLENE GLYCOL-EPOETIN BETA [Concomitant]
     Active Substance: METHOXY POLYETHYLENE GLYCOL-EPOETIN BETA
     Indication: Nephrogenic anaemia
     Dosage: 50 MICROGRAM, 1/WEEK
     Route: 042
     Dates: start: 20240717, end: 20240805
  15. METHOXY POLYETHYLENE GLYCOL-EPOETIN BETA [Concomitant]
     Active Substance: METHOXY POLYETHYLENE GLYCOL-EPOETIN BETA
     Dosage: 75 MICROGRAM, 1/WEEK
     Route: 042
     Dates: start: 20240809
  16. ROXADUSTAT [Concomitant]
     Active Substance: ROXADUSTAT
     Indication: Nephrogenic anaemia
     Dosage: 40 MILLIGRAM, 3/WEEK
     Route: 048
     Dates: end: 20220808
  17. CILNIDIPINE [Concomitant]
     Active Substance: CILNIDIPINE
     Indication: Illness
     Dosage: 5 MILLIGRAM, QD
     Route: 048
     Dates: end: 20230125
  18. LIVALO [Concomitant]
     Active Substance: PITAVASTATIN CALCIUM
     Indication: Illness
     Dosage: 1 MILLIGRAM, QD
     Route: 048
  19. CARVEDILOL [Concomitant]
     Active Substance: CARVEDILOL
     Indication: Illness
     Dosage: 10 MILLIGRAM, QD
     Route: 048
  20. FEBUXOSTAT [Concomitant]
     Active Substance: FEBUXOSTAT
     Indication: Illness
     Dosage: 40 MILLIGRAM, QD
     Route: 048
  21. URSODIOL [Concomitant]
     Active Substance: URSODIOL
     Indication: Illness
     Dosage: 600 MILLIGRAM, QD
     Route: 048
     Dates: end: 20230208
  22. KREMEZIN [Concomitant]
     Active Substance: ACTIVATED CHARCOAL
     Indication: Illness
     Dosage: 6 GRAM, QD
     Route: 048
     Dates: end: 20221109
  23. FERRIC CITRATE ANHYDROUS [Concomitant]
     Active Substance: FERRIC CITRATE ANHYDROUS
     Indication: Product used for unknown indication
     Dosage: UNK
     Route: 065

REACTIONS (13)
  - Melaena [Recovered/Resolved]
  - Diverticulum intestinal haemorrhagic [Recovered/Resolved]
  - Dialysis [Not Recovered/Not Resolved]
  - Cardiac failure congestive [Recovering/Resolving]
  - Pericardial effusion [Not Recovered/Not Resolved]
  - Coronary artery stenosis [Not Recovered/Not Resolved]
  - Angina pectoris [Recovering/Resolving]
  - C-reactive protein increased [Recovered/Resolved]
  - Diabetes mellitus [Recovered/Resolved]
  - Diabetic retinopathy [Recovered/Resolved]
  - Blood phosphorus increased [Recovered/Resolved]
  - Blood calcium decreased [Recovered/Resolved]
  - Blood pressure increased [Recovered/Resolved]

NARRATIVE: CASE EVENT DATE: 20220808
